FAERS Safety Report 21927901 (Version 1)
Quarter: 2023Q1

REPORT INFORMATION
  Report Type: Spontaneous
  Country: US (occurrence: US)
  Receive Date: 20230130
  Receipt Date: 20230130
  Transmission Date: 20230417
  Serious: Yes (Other)
  Sender: FDA-Public Use
  Company Number: US-BAYER-2023A008811

PATIENT
  Age: 21 Year
  Sex: Female

DRUGS (1)
  1. MIRENA [Suspect]
     Active Substance: LEVONORGESTREL
     Indication: Contraception
     Dosage: 20?G/DAY
     Route: 015
     Dates: start: 20221024, end: 20221224

REACTIONS (10)
  - Suicidal ideation [Recovering/Resolving]
  - Depression [Recovering/Resolving]
  - Abdominal pain [Recovering/Resolving]
  - Anger [Recovering/Resolving]
  - Acne [Recovering/Resolving]
  - Headache [Recovering/Resolving]
  - Alopecia [Recovering/Resolving]
  - Fatigue [Recovering/Resolving]
  - Panic attack [Recovering/Resolving]
  - Anxiety [Recovering/Resolving]

NARRATIVE: CASE EVENT DATE: 20221024
